FAERS Safety Report 21993695 (Version 2)
Quarter: 2023Q1

REPORT INFORMATION
  Report Type: Report from Study
  Country: US (occurrence: US)
  Receive Date: 20230215
  Receipt Date: 20230220
  Transmission Date: 20230417
  Serious: No
  Sender: FDA-Public Use
  Company Number: US-002147023-NVSC2023US033071

PATIENT
  Sex: Female

DRUGS (1)
  1. COSENTYX [Suspect]
     Active Substance: SECUKINUMAB
     Indication: Psoriasis
     Dosage: 300 MG, QMO
     Route: 058

REACTIONS (5)
  - Nail disorder [Recovering/Resolving]
  - Erythema [Recovering/Resolving]
  - Nasal discomfort [Recovering/Resolving]
  - Psoriasis [Recovering/Resolving]
  - Skin plaque [Recovering/Resolving]
